FAERS Safety Report 7884505-7 (Version None)
Quarter: 2011Q4

REPORT INFORMATION
  Report Type: 
  Country: None (occurrence: None)
  Receive Date: 20111102
  Receipt Date: 20111025
  Transmission Date: 20120403
  Serious: No
  Sender: FDA-Public Use
  Company Number: US-B.I. PHARMACEUTICALS,INC./RIDGEFIELD-2011-BP-24939BP

PATIENT
  Age: 90 Year
  Sex: Female

DRUGS (5)
  1. SYNTHROID [Concomitant]
     Indication: HYPOTHYROIDISM
     Route: 048
  2. FISH OIL [Concomitant]
     Indication: RHEUMATOID ARTHRITIS
     Route: 048
  3. ACTIVA [Concomitant]
     Indication: CONSTIPATION
  4. DIOVAN [Concomitant]
     Indication: HYPERTENSION
     Route: 048
  5. PRADAXA [Suspect]
     Indication: ATRIAL FIBRILLATION
     Dosage: 300 MG
     Route: 048
     Dates: start: 20110901

REACTIONS (4)
  - LOCALISED OEDEMA [None]
  - DYSPHONIA [None]
  - OEDEMA PERIPHERAL [None]
  - BACK PAIN [None]
